FAERS Safety Report 6693180-9 (Version None)
Quarter: 2010Q2

REPORT INFORMATION
  Report Type: 
  Country: None (occurrence: None)
  Receive Date: 20100422
  Receipt Date: 20100413
  Transmission Date: 20101027
  Serious: Yes (Other)
  Sender: FDA-Public Use
  Company Number: US-ELI_LILLY_AND_COMPANY-US201004004310

PATIENT
  Age: 85 Year
  Sex: Male

DRUGS (15)
  1. HUMATROPE [Suspect]
     Indication: BRAIN OPERATION
     Dosage: 0.1 MG, UNK
     Dates: start: 20021201
  2. LEVOTHYROXINE [Concomitant]
     Dosage: 0.125 MG, UNK
  3. OMEPRAZOLE [Concomitant]
     Dosage: 20 MG, UNK
  4. HYDROCORTISONE [Concomitant]
     Dosage: 15 MG, UNK
  5. HYDROCORTISONE [Concomitant]
     Dosage: 5 MG, UNK
  6. ASPIRIN [Concomitant]
     Dosage: 375 MG, UNK
  7. HYDROCHLOROTHIAZIDE [Concomitant]
     Dosage: 75 MG, UNK
  8. CALCIUM W/VITAMIN D NOS [Concomitant]
     Dosage: 600 MG, 2/D
  9. ICAPS [Concomitant]
     Dosage: 4 MG, 2/D
  10. TYLENOL (CAPLET) [Concomitant]
     Dosage: 500 MG, 2/D
  11. NAPROSYN [Concomitant]
     Dosage: 375 MG, UNK
  12. LIPITOR [Concomitant]
     Dosage: 20 MG, UNK
  13. LORAZEPAM [Concomitant]
     Dosage: 0.5 MG, UNK
  14. FOSAMAX [Concomitant]
     Dosage: 35 MG, WEEKLY (1/W)
  15. TESTOSTERONE [Concomitant]
     Dosage: 150 MG, OTHER

REACTIONS (3)
  - BRADYPHRENIA [None]
  - CEREBROVASCULAR ACCIDENT [None]
  - MOBILITY DECREASED [None]
